FAERS Safety Report 6260301-1 (Version None)
Quarter: 2009Q3

REPORT INFORMATION
  Report Type: 
  Country: None (occurrence: None)
  Receive Date: 20090708
  Receipt Date: 20090629
  Transmission Date: 20100115
  Serious: Yes (Hospitalization)
  Sender: FDA-Public Use
  Company Number: FR-ASTRAZENECA-2009SE03622

PATIENT
  Age: 31784 Day
  Sex: Female

DRUGS (5)
  1. ZESTRIL [Suspect]
     Route: 048
     Dates: end: 20090424
  2. AMAREL [Suspect]
     Indication: DIABETES MELLITUS
     Route: 048
     Dates: end: 20090424
  3. KARDEGIC [Suspect]
     Route: 048
  4. DIGOXIN [Suspect]
     Route: 048
     Dates: end: 20090424
  5. CORDARONE [Concomitant]
     Route: 048

REACTIONS (1)
  - HYPOGLYCAEMIC COMA [None]
